FAERS Safety Report 7459866-3 (Version None)
Quarter: 2011Q2

REPORT INFORMATION
  Report Type: 
  Country: None (occurrence: None)
  Receive Date: 20110427
  Receipt Date: 20110412
  Transmission Date: 20111010
  Serious: Yes (Hospitalization, Other)
  Sender: FDA-Public Use
  Company Number: AUR-APL-2011-02138

PATIENT
  Age: 70 Year
  Sex: Male
  Weight: 75 kg

DRUGS (11)
  1. LISINOPRIL [Suspect]
     Dosage: ORAL
     Route: 048
     Dates: end: 20090626
  2. METOPROLOL SUCCINATE [Suspect]
     Dates: end: 20090626
  3. ISOSORBIDE MONONITRATE [Concomitant]
  4. VALSARTAN [Concomitant]
  5. THYRAX [Concomitant]
  6. FUROSEMIDE [Suspect]
     Dosage: 80MG, BID, ORAL
     Route: 048
     Dates: start: 20080201, end: 20090625
  7. ASPIRIN [Concomitant]
  8. METFORMIN HCL [Concomitant]
  9. EFFEXOR [Concomitant]
  10. SPIRIVA [Concomitant]
  11. EPLERENONE [Suspect]
     Dosage: ORAL
     Route: 048
     Dates: start: 20081006, end: 20090625

REACTIONS (3)
  - CARDIAC FAILURE [None]
  - CONDITION AGGRAVATED [None]
  - MALAISE [None]
